FAERS Safety Report 9290710 (Version 1)
Quarter: 2013Q2

REPORT INFORMATION
  Report Type: Report from Study
  Country: US (occurrence: US)
  Receive Date: 20130515
  Receipt Date: 20130515
  Transmission Date: 20140414
  Serious: Yes (Death, Hospitalization)
  Sender: FDA-Public Use
  Company Number: US-ACTELION-A-NJ2013-78750

PATIENT
  Age: 56 Year
  Sex: Male

DRUGS (2)
  1. VELETRI [Suspect]
     Indication: PORTOPULMONARY HYPERTENSION
     Dosage: 18 NG/KG, PER MIN
     Route: 041
     Dates: start: 20100727
  2. ASPIRIN [Concomitant]

REACTIONS (5)
  - Death [Fatal]
  - Osteomyelitis [Recovering/Resolving]
  - Back pain [Recovering/Resolving]
  - Intervertebral discitis [Recovering/Resolving]
  - Drug dose omission [Unknown]
